FAERS Safety Report 7760435-6 (Version None)
Quarter: 2011Q3

REPORT INFORMATION
  Report Type: 
  Country: None (occurrence: None)
  Receive Date: 20110919
  Receipt Date: 20110913
  Transmission Date: 20111222
  Serious: Yes (Life-Threatening, Other)
  Sender: FDA-Public Use
  Company Number: DE-ASTRAZENECA-2011SE55472

PATIENT
  Age: 28211 Day
  Sex: Female
  Weight: 87.5 kg

DRUGS (2)
  1. ASPIRIN [Concomitant]
  2. BRILIQUE [Suspect]
     Indication: ACUTE CORONARY SYNDROME
     Route: 048
     Dates: start: 20110814, end: 20110907

REACTIONS (1)
  - THROMBOCYTOPENIA [None]
